FAERS Safety Report 22601997 (Version 2)
Quarter: 2023Q2

REPORT INFORMATION
  Report Type: Spontaneous
  Country: US (occurrence: US)
  Receive Date: 20230614
  Receipt Date: 20230616
  Transmission Date: 20230722
  Serious: No
  Sender: FDA-Public Use
  Company Number: US-SUNOVION-2023SUN000764AA

PATIENT
  Age: 76 Year
  Sex: Female

DRUGS (2)
  1. LATUDA [Suspect]
     Active Substance: LURASIDONE HYDROCHLORIDE
     Dosage: 30 MG, HS, ONE 20 MG TABLET, AND CUTTING ONE OF THE OTHER 20 MG TABLETS IN HALF
     Route: 048
  2. LATUDA [Suspect]
     Active Substance: LURASIDONE HYDROCHLORIDE
     Dosage: 20 MG, HS
     Route: 048

REACTIONS (4)
  - Feeling abnormal [Unknown]
  - Fluid retention [Unknown]
  - Off label use [Unknown]
  - Wrong technique in product usage process [Unknown]
